FAERS Safety Report 16798657 (Version 1)
Quarter: 2019Q3

REPORT INFORMATION
  Report Type: Spontaneous
  Country: US (occurrence: US)
  Receive Date: 20190912
  Receipt Date: 20190912
  Transmission Date: 20191005
  Serious: Yes (Hospitalization, Other)
  Sender: FDA-Public Use
  Company Number: US-SA-2019SA252773

PATIENT
  Age: 48 Year
  Sex: Male
  Weight: 151.93 kg

DRUGS (38)
  1. HYDROCODONE/ACETAMINOPHEN [Concomitant]
     Active Substance: ACETAMINOPHEN\HYDROCODONE
  2. TAMSULOSIN HCL [Concomitant]
     Active Substance: TAMSULOSIN HYDROCHLORIDE
  3. SOLU-MEDROL [Concomitant]
     Active Substance: METHYLPREDNISOLONE SODIUM SUCCINATE
  4. VITAMIN C [Concomitant]
     Active Substance: ASCORBIC ACID
  5. STERILE WATER [Concomitant]
     Active Substance: WATER
  6. CHLORTHALIDONE. [Concomitant]
     Active Substance: CHLORTHALIDONE
  7. DUPIXENT [Suspect]
     Active Substance: DUPILUMAB
     Indication: HYPOGAMMAGLOBULINAEMIA
     Dosage: 300 MG, QOW
     Route: 058
  8. EPINEPHRINE. [Concomitant]
     Active Substance: EPINEPHRINE
  9. DIPHENHYDRAMINE. [Concomitant]
     Active Substance: DIPHENHYDRAMINE
  10. PROVENTIL HFA [SALBUTAMOL] [Concomitant]
  11. PANTOPRAZOLE SODIUM. [Concomitant]
     Active Substance: PANTOPRAZOLE SODIUM
  12. LIDOCAINE. [Concomitant]
     Active Substance: LIDOCAINE
  13. ACETAMINOPHEN. [Concomitant]
     Active Substance: ACETAMINOPHEN
  14. SODIUM CHLORIDE. [Concomitant]
     Active Substance: SODIUM CHLORIDE
  15. XOLAIR [Concomitant]
     Active Substance: OMALIZUMAB
  16. SINGULAIR [Concomitant]
     Active Substance: MONTELUKAST SODIUM
  17. VERAPAMIL [Concomitant]
     Active Substance: VERAPAMIL HYDROCHLORIDE
  18. CEFUROXIME. [Concomitant]
     Active Substance: CEFUROXIME
  19. ZETIA [Concomitant]
     Active Substance: EZETIMIBE
  20. UROCIT-K [Concomitant]
     Active Substance: POTASSIUM CITRATE
  21. DIPHENHYDRAMINE HCL [Concomitant]
     Active Substance: DIPHENHYDRAMINE HYDROCHLORIDE
  22. BREO ELLIPTA [Concomitant]
     Active Substance: FLUTICASONE FUROATE\VILANTEROL TRIFENATATE
  23. XYZAL [Concomitant]
     Active Substance: LEVOCETIRIZINE DIHYDROCHLORIDE
  24. ROBAXIN-750 [Concomitant]
     Active Substance: METHOCARBAMOL
  25. MAGNESIUM [Concomitant]
     Active Substance: MAGNESIUM
  26. ANDROGEL [Concomitant]
     Active Substance: TESTOSTERONE
  27. LASIX [Concomitant]
     Active Substance: FUROSEMIDE
  28. SPIRIVA [Concomitant]
     Active Substance: TIOTROPIUM BROMIDE MONOHYDRATE
  29. ZYRTEC-D [Concomitant]
     Active Substance: CETIRIZINE HYDROCHLORIDE\PSEUDOEPHEDRINE HYDROCHLORIDE
  30. XOPENEX [Concomitant]
     Active Substance: LEVALBUTEROL HYDROCHLORIDE
  31. LANSOPRAZOLE. [Concomitant]
     Active Substance: LANSOPRAZOLE
  32. CIALIS [Concomitant]
     Active Substance: TADALAFIL
  33. TESTOSTERONE. [Concomitant]
     Active Substance: TESTOSTERONE
  34. LEVALBUTEROL [LEVOSALBUTAMOL] [Concomitant]
     Active Substance: LEVALBUTEROL
  35. SPIRIVA RESPIMAT [Concomitant]
     Active Substance: TIOTROPIUM BROMIDE
     Route: 055
  36. SODIUM CHLORIDE. [Concomitant]
     Active Substance: SODIUM CHLORIDE
  37. MOBIC [Concomitant]
     Active Substance: MELOXICAM
  38. BROVANA [Concomitant]
     Active Substance: ARFORMOTEROL TARTRATE

REACTIONS (3)
  - Myocardial infarction [Unknown]
  - Lung infection [Unknown]
  - Product use in unapproved indication [Unknown]
